FAERS Safety Report 7183529-5 (Version None)
Quarter: 2010Q4

REPORT INFORMATION
  Report Type: 
  Country: None (occurrence: None)
  Receive Date: 20101222
  Receipt Date: 20101216
  Transmission Date: 20110411
  Serious: Yes (Life-Threatening)
  Sender: FDA-Public Use
  Company Number: PHHY2010FR86092

PATIENT
  Sex: Female

DRUGS (7)
  1. RASILEZ HCT [Suspect]
     Dosage: UNK
     Dates: end: 20100816
  2. PLAVIX [Concomitant]
  3. KARDEGIC [Concomitant]
     Dosage: UNK
  4. SECTRAL [Concomitant]
  5. TRIMETAZIDINE [Concomitant]
     Dosage: UNK
  6. MEBEVERINE [Concomitant]
     Dosage: UNK
  7. MOTILIUM [Concomitant]

REACTIONS (2)
  - ANURIA [None]
  - HYPONATRAEMIA [None]
